FAERS Safety Report 4629483-9 (Version None)
Quarter: 2005Q2

REPORT INFORMATION
  Report Type: 
  Country: None (occurrence: None)
  Receive Date: 20050405
  Receipt Date: 20050321
  Transmission Date: 20051028
  Serious: No
  Sender: FDA-Public Use
  Company Number: 2005GB00593

PATIENT
  Age: 78 Year
  Sex: Male

DRUGS (3)
  1. ZOLADEX [Suspect]
     Indication: PROSTATE CANCER
     Dosage: 3.6 MG MONTH SQ
     Route: 058
     Dates: start: 20040313, end: 20040410
  2. ZOLADEX [Suspect]
     Indication: PROSTATE CANCER
     Dosage: 10.8 MG Q3MO SQ
     Route: 058
     Dates: start: 20040410
  3. GLICLAZIDE [Concomitant]

REACTIONS (3)
  - CIRCULATORY COLLAPSE [None]
  - CONVULSION [None]
  - PETIT MAL EPILEPSY [None]
